FAERS Safety Report 6453829-2 (Version None)
Quarter: 2009Q4

REPORT INFORMATION
  Report Type: 
  Country: None (occurrence: None)
  Receive Date: 20091124
  Receipt Date: 20091110
  Transmission Date: 20100525
  Serious: Yes (Hospitalization)
  Sender: FDA-Public Use
  Company Number: TW-SANOFI-AVENTIS-200922060GDDC

PATIENT
  Age: 49 Year
  Sex: Female
  Weight: 51 kg

DRUGS (2)
  1. DOCETAXEL [Suspect]
     Route: 042
     Dates: start: 20090910, end: 20090910
  2. EPIRUBICIN [Suspect]
     Route: 042
     Dates: start: 20090910, end: 20090910

REACTIONS (3)
  - DIARRHOEA [None]
  - LEUKOCYTOSIS [None]
  - VOMITING [None]
